FAERS Safety Report 6355921-X (Version None)
Quarter: 2009Q3

REPORT INFORMATION
  Report Type: 
  Country: None (occurrence: None)
  Receive Date: 20090914
  Receipt Date: 20090914
  Transmission Date: 20100115
  Serious: Yes (Life-Threatening)
  Sender: FDA-Public Use
  Company Number: None

PATIENT
  Age: 33 Year
  Sex: Male
  Weight: 74.8435 kg

DRUGS (2)
  1. SINGULAIR [Suspect]
     Indication: ASTHMA
     Dosage: 10 MG ONCE PER DAY PO
     Route: 048
     Dates: start: 20090317, end: 20090905
  2. SINGULAIR [Suspect]
     Indication: RHINITIS ALLERGIC
     Dosage: 10 MG ONCE PER DAY PO
     Route: 048
     Dates: start: 20090317, end: 20090905

REACTIONS (10)
  - ANXIETY [None]
  - APATHY [None]
  - ASTHENIA [None]
  - DEPRESSION [None]
  - DRUG WITHDRAWAL SYNDROME [None]
  - EMOTIONAL DISORDER [None]
  - FEELING ABNORMAL [None]
  - INSOMNIA [None]
  - MORBID THOUGHTS [None]
  - NERVOUS SYSTEM DISORDER [None]
